FAERS Safety Report 9851651 (Version 2)
Quarter: 2014Q1

REPORT INFORMATION
  Report Type: Spontaneous
  Country: FR (occurrence: FR)
  Receive Date: 20140129
  Receipt Date: 20140130
  Transmission Date: 20141002
  Serious: Yes (Life-Threatening, Hospitalization)
  Sender: FDA-Public Use
  Company Number: FR-ROCHE-1337534

PATIENT
  Age: 33 Year
  Sex: Female

DRUGS (6)
  1. CELLCEPT [Suspect]
     Indication: ORGAN TRANSPLANT
     Route: 048
     Dates: start: 20131004
  2. CELLCEPT [Suspect]
     Route: 048
  3. PROGRAF [Suspect]
     Indication: ORGAN TRANSPLANT
     Dosage: 1 MG
     Route: 048
     Dates: start: 20131004, end: 20140107
  4. ZELITREX [Suspect]
     Indication: ANTIVIRAL PROPHYLAXIS
     Route: 048
     Dates: start: 20131226, end: 20131230
  5. ZELITREX [Suspect]
     Route: 048
     Dates: start: 20140101, end: 20140102
  6. ZELITREX [Suspect]
     Route: 048
     Dates: start: 20140103

REACTIONS (2)
  - Convulsion [Recovering/Resolving]
  - Posterior reversible encephalopathy syndrome [Not Recovered/Not Resolved]
